FAERS Safety Report 9395330 (Version 2)
Quarter: 2013Q4

REPORT INFORMATION
  Report Type: Spontaneous
  Country: US (occurrence: US)
  Receive Date: 20130711
  Receipt Date: 20131010
  Transmission Date: 20140711
  Serious: No
  Sender: FDA-Public Use
  Company Number: US-ASTELLAS-2013US006041

PATIENT
  Sex: Male

DRUGS (4)
  1. MYRBETRIQ [Suspect]
     Indication: BENIGN PROSTATIC HYPERPLASIA
     Dosage: UNK
     Route: 048
     Dates: start: 201305
  2. MYRBETRIQ [Suspect]
     Indication: NOCTURIA
  3. MYRBETRIQ [Suspect]
     Indication: POLLAKIURIA
  4. L-ARGININE                         /00126101/ [Concomitant]
     Indication: HYPERTENSION
     Dosage: UNK
     Route: 065

REACTIONS (4)
  - Off label use [Unknown]
  - Drug ineffective for unapproved indication [Unknown]
  - Blood pressure decreased [Recovered/Resolved]
  - Therapeutic response unexpected [Unknown]
